FAERS Safety Report 7880956-5 (Version None)
Quarter: 2011Q4

REPORT INFORMATION
  Report Type: 
  Country: None (occurrence: None)
  Receive Date: 20111101
  Receipt Date: 20111027
  Transmission Date: 20120403
  Serious: Yes (Hospitalization)
  Sender: FDA-Public Use
  Company Number: GR-ABBOTT-11P-066-0851801-00

PATIENT
  Sex: Male
  Weight: 83 kg

DRUGS (1)
  1. HUMIRA [Suspect]
     Indication: PSORIASIS
     Route: 058
     Dates: start: 20110414

REACTIONS (5)
  - VIITH NERVE PARALYSIS [None]
  - DYSARTHRIA [None]
  - HYPOAESTHESIA [None]
  - ISCHAEMIC STROKE [None]
  - PARESIS [None]
